FAERS Safety Report 7703042-3 (Version None)
Quarter: 2011Q3

REPORT INFORMATION
  Report Type: 
  Country: None (occurrence: None)
  Receive Date: 20110817
  Receipt Date: 20110808
  Transmission Date: 20111222
  Serious: Yes (Death)
  Sender: FDA-Public Use
  Company Number: 1000021787

PATIENT
  Age: 22 Year
  Sex: Male
  Weight: 74.84 kg

DRUGS (4)
  1. OXYCODONE HCL [Suspect]
  2. ESCITALOPRAM OXALATE [Suspect]
  3. DIAZEPAM [Suspect]
  4. NORDIAZEPAM (NORDAZEPAM) [Suspect]

REACTIONS (3)
  - POISONING [None]
  - ASPIRATION [None]
  - UNRESPONSIVE TO STIMULI [None]
